FAERS Safety Report 24271232 (Version 1)
Quarter: 2024Q3

REPORT INFORMATION
  Report Type: Report from Study
  Country: BR (occurrence: BR)
  Receive Date: 20240901
  Receipt Date: 20240901
  Transmission Date: 20241016
  Serious: Yes (Hospitalization)
  Sender: JOHNSON AND JOHNSON
  Company Number: BR-JNJFOC-20240860693

PATIENT
  Age: 45 Year
  Sex: Female

DRUGS (1)
  1. TALVEY [Suspect]
     Active Substance: TALQUETAMAB-TGVS
     Indication: Plasma cell myeloma
     Dosage: LAST ADMINISTRATION 19-AUG-2024
     Route: 058

REACTIONS (12)
  - Anosmia [Unknown]
  - Pyrexia [Unknown]
  - Ageusia [Unknown]
  - Bone pain [Unknown]
  - Back pain [Unknown]
  - Oedema genital [Unknown]
  - Rash [Unknown]
  - Dry skin [Unknown]
  - Heart rate increased [Unknown]
  - Hypotension [Unknown]
  - Palmar erythema [Unknown]
  - Mobility decreased [Unknown]
